FAERS Safety Report 22895967 (Version 3)
Quarter: 2023Q4

REPORT INFORMATION
  Report Type: Spontaneous
  Country: US (occurrence: US)
  Receive Date: 20230901
  Receipt Date: 20231215
  Transmission Date: 20240109
  Serious: Yes (Hospitalization)
  Sender: FDA-Public Use
  Company Number: US-KARYOPHARM-2023KPT001812

PATIENT

DRUGS (2)
  1. XPOVIO [Suspect]
     Active Substance: SELINEXOR
     Indication: Plasma cell myeloma
     Dosage: 60 MG, WEEKLY, DAYS 1,8, 15
     Route: 048
     Dates: start: 20230627
  2. POMALYST [Concomitant]
     Active Substance: POMALIDOMIDE
     Dosage: UNK
     Dates: start: 202306

REACTIONS (3)
  - Fall [Unknown]
  - Red blood cell count increased [Unknown]
  - Illness [Unknown]

NARRATIVE: CASE EVENT DATE: 20230801
